FAERS Safety Report 4874611-3 (Version None)
Quarter: 2006Q1

REPORT INFORMATION
  Report Type: 
  Country: None (occurrence: None)
  Receive Date: 20060106
  Receipt Date: 20051005
  Transmission Date: 20060701
  Serious: Yes (Death, Hospitalization)
  Sender: FDA-Public Use
  Company Number: US-MERCK-0510USA04180

PATIENT
  Age: 60 Year
  Sex: Female
  Weight: 75 kg

DRUGS (9)
  1. VIOXX [Suspect]
     Indication: OSTEOARTHRITIS
     Route: 048
     Dates: start: 20000101, end: 20040101
  2. ADVAIR DISKUS 250/50 [Concomitant]
     Route: 065
  3. SINGULAIR [Concomitant]
     Route: 048
  4. ALBUTEROL [Concomitant]
     Route: 065
  5. EVISTA [Concomitant]
     Route: 065
  6. CENTRUM SILVER [Concomitant]
     Route: 065
  7. NIACIN [Concomitant]
     Route: 065
  8. ASCORBIC ACID [Concomitant]
     Route: 065
  9. VITAMIN E [Concomitant]
     Route: 065

REACTIONS (7)
  - CONVULSION [None]
  - DEATH [None]
  - DEEP VEIN THROMBOSIS [None]
  - DEPRESSION [None]
  - ISCHAEMIC STROKE [None]
  - SUBDURAL HAEMATOMA [None]
  - SUBDURAL HAEMORRHAGE [None]
